FAERS Safety Report 15321935 (Version 1)
Quarter: 2018Q3

REPORT INFORMATION
  Report Type: Spontaneous
  Country: FR (occurrence: FR)
  Receive Date: 20180827
  Receipt Date: 20180827
  Transmission Date: 20181010
  Serious: Yes (Hospitalization)
  Sender: FDA-Public Use
  Company Number: FR-PFIZER INC-2018337941

PATIENT
  Age: 5 Year
  Sex: Female

DRUGS (2)
  1. GLIVEC [Suspect]
     Active Substance: IMATINIB MESYLATE
     Dosage: 200 MG, 1X/DAY
     Dates: start: 20180123
  2. VFEND [Suspect]
     Active Substance: VORICONAZOLE
     Dosage: 240 MG, UNK
     Dates: start: 20180215

REACTIONS (2)
  - Dermatitis bullous [Recovering/Resolving]
  - Photosensitivity reaction [Recovering/Resolving]

NARRATIVE: CASE EVENT DATE: 20180424
